FAERS Safety Report 8833636 (Version 1)
Quarter: 2012Q4

REPORT INFORMATION
  Report Type: 
  Country: JP (occurrence: JP)
  Receive Date: 20121010
  Receipt Date: 20121010
  Transmission Date: 20130627
  Serious: Yes (Hospitalization)
  Sender: FDA-Public Use
  Company Number: JP-ROCHE-1142186

PATIENT
  Age: 76 Year
  Sex: Male
  Weight: 67 kg

DRUGS (13)
  1. MIRCERA [Suspect]
     Indication: NEPHROGENIC ANAEMIA
     Route: 058
     Dates: start: 20120704, end: 20120801
  2. MIRCERA [Suspect]
     Indication: NEPHROGENIC ANAEMIA
     Route: 058
     Dates: start: 20120801, end: 20120829
  3. MIRCERA [Suspect]
     Indication: NEPHROGENIC ANAEMIA
     Route: 058
     Dates: start: 20120829
  4. TELMISARTAN [Concomitant]
     Dosage: Drug reported as : MICOMBI
     Route: 048
  5. PLAVIX [Concomitant]
     Route: 048
  6. BAYASPIRIN [Concomitant]
     Route: 048
  7. HARNAL [Concomitant]
     Route: 048
  8. PARIET [Concomitant]
     Route: 048
  9. AMLODIPINE [Concomitant]
     Route: 048
  10. ATELEC [Concomitant]
     Route: 048
  11. KAYEXALATE [Concomitant]
     Route: 048
  12. NIKORAN [Concomitant]
     Dosage: Drug reported as : NICORANDIL
     Route: 048
  13. SEIBULE [Concomitant]
     Route: 048

REACTIONS (3)
  - Blood pressure decreased [Recovered/Resolved]
  - Altered state of consciousness [Recovered/Resolved]
  - Fall [Unknown]
